FAERS Safety Report 23932853 (Version 1)
Quarter: 2024Q2

REPORT INFORMATION
  Report Type: Spontaneous
  Country: US (occurrence: None)
  Receive Date: 20240601
  Receipt Date: 20240601
  Transmission Date: 20240716
  Serious: Yes (Hospitalization)
  Sender: FDA-Public Use
  Company Number: None

PATIENT
  Age: 54 Year
  Sex: Male
  Weight: 85.5 kg

DRUGS (1)
  1. CISPLATIN [Suspect]
     Active Substance: CISPLATIN
     Dates: end: 20240522

REACTIONS (4)
  - Pain [None]
  - Decreased appetite [None]
  - Weight decreased [None]
  - Mucosal inflammation [None]

NARRATIVE: CASE EVENT DATE: 20240528
